FAERS Safety Report 4372315-7 (Version None)
Quarter: 2004Q2

REPORT INFORMATION
  Report Type: 
  Country: None (occurrence: None)
  Receive Date: 20040602
  Receipt Date: 20040521
  Transmission Date: 20050107
  Serious: Yes (Hospitalization, Other)
  Sender: FDA-Public Use
  Company Number: 2004215242GB

PATIENT
  Age: 80 Year
  Sex: Male

DRUGS (6)
  1. CABASER (CABERGOLINE) TABLET, 1-4 MG [Suspect]
     Indication: PARKINSON'S DISEASE
     Dosage: 6 MG/DAY, ORAL
     Route: 048
     Dates: start: 20010609, end: 20031125
  2. DICLOFENAC SODIUM [Concomitant]
  3. MISOPROSTOL [Concomitant]
  4. DOXAZOSIN (DOXAZOSIN) [Concomitant]
  5. BENDROFLUAZIDE [Concomitant]
  6. SINEMET [Concomitant]

REACTIONS (2)
  - MITRAL VALVE INCOMPETENCE [None]
  - TRICUSPID VALVE INCOMPETENCE [None]
